FAERS Safety Report 6355971-3 (Version None)
Quarter: 2009Q3

REPORT INFORMATION
  Report Type: 
  Country: None (occurrence: None)
  Receive Date: 20090915
  Receipt Date: 20090908
  Transmission Date: 20100115
  Serious: Yes (Death)
  Sender: FDA-Public Use
  Company Number: NL-ROCHE-655936

PATIENT

DRUGS (4)
  1. CAPECITABINE [Suspect]
     Dosage: AS PER PROTOCOL: 1000 MG/M2 BID DAYS 1 TO 14  (1250 CYCLE 7 ONWARDS).
     Route: 048
  2. BEVACIZUMAB [Suspect]
     Dosage: AS PER PROTOCOL: 7.5 MG/KG ON DAY 1
     Route: 042
  3. CETUXIMAB [Suspect]
     Dosage: AS PER PROTOCOL: 400 MG/M2 LOADING DOSE DAY1 CYCLE1, THEN 250 MG/M2 WEEKLY
     Route: 042
  4. OXALIPLATIN [Suspect]
     Dosage: AS PER PROTOCOL: 130 MG/M2 ON DAY 1
     Route: 042

REACTIONS (1)
  - CHEST PAIN [None]
